FAERS Safety Report 5140510-5 (Version None)
Quarter: 2006Q4

REPORT INFORMATION
  Report Type: 
  Country: None (occurrence: None)
  Receive Date: 20061025
  Receipt Date: 20061004
  Transmission Date: 20070319
  Serious: Yes (Hospitalization, Other)
  Sender: FDA-Public Use
  Company Number: 2006125863

PATIENT
  Age: 71 Year
  Sex: Male
  Weight: 92.9874 kg

DRUGS (1)
  1. BEXTRA [Suspect]
     Indication: RHEUMATOID ARTHRITIS
     Dosage: 20 MG (10 MG, 2 IN 1 D)
     Dates: start: 20030630

REACTIONS (2)
  - BRAIN DAMAGE [None]
  - CEREBROVASCULAR ACCIDENT [None]
